FAERS Safety Report 11574023 (Version 1)
Quarter: 2015Q3

REPORT INFORMATION
  Report Type: Spontaneous
  Country: CA (occurrence: CA)
  Receive Date: 20150930
  Receipt Date: 20150930
  Transmission Date: 20151125
  Serious: Yes (Other)
  Sender: FDA-Public Use
  Company Number: CA-HOSPIRA-3024530

PATIENT
  Age: 47 Year
  Sex: Male

DRUGS (6)
  1. HYDROXYCHLOROQUINE PHOSPHATE [Concomitant]
     Active Substance: HYDROXYCHLOROQUINE DIPHOSPHATE
     Indication: RHEUMATOID ARTHRITIS
     Dates: end: 20140728
  2. ENBREL [Concomitant]
     Active Substance: ETANERCEPT
     Indication: RHEUMATOID ARTHRITIS
  3. SIMPONI [Concomitant]
     Active Substance: GOLIMUMAB
     Indication: RHEUMATOID ARTHRITIS
  4. LEFLUNOMID [Suspect]
     Active Substance: LEFLUNOMIDE
     Indication: RHEUMATOID ARTHRITIS
     Dates: end: 20141006
  5. METHOTREXATE [Suspect]
     Active Substance: METHOTREXATE
     Indication: RHEUMATOID ARTHRITIS
  6. SULFASALAZINE. [Concomitant]
     Active Substance: SULFASALAZINE
     Indication: PRODUCT USED FOR UNKNOWN INDICATION

REACTIONS (1)
  - Drug intolerance [Unknown]
